FAERS Safety Report 9817896 (Version 2)
Quarter: 2014Q2

REPORT INFORMATION
  Report Type: Spontaneous
  Country: US (occurrence: None)
  Receive Date: 20131127
  Receipt Date: 20131127
  Transmission Date: 20141212
  Serious: No
  Sender: FDA-Public Use
  Company Number: 218854

PATIENT
  Age: 59 Year
  Sex: Male

DRUGS (2)
  1. PICATO [Suspect]
     Indication: ACTINIC KERATOSIS
     Route: 061
     Dates: start: 20120907
  2. RETIN A (TRETINOIN) [Concomitant]

REACTIONS (5)
  - Application site pain [None]
  - Application site pain [None]
  - Incorrect dose administered [None]
  - Off label use [None]
  - Drug administered at inappropriate site [None]
